FAERS Safety Report 5353331-5 (Version None)
Quarter: 2007Q2

REPORT INFORMATION
  Report Type: 
  Country: None (occurrence: None)
  Receive Date: 20070518
  Receipt Date: 20070226
  Transmission Date: 20071010
  Serious: No
  Sender: FDA-Public Use
  Company Number: TPA2007A00498

PATIENT
  Sex: Female

DRUGS (3)
  1. ROZEREM [Suspect]
     Indication: INSOMNIA
     Dosage: PER ORAL
     Route: 048
  2. TEMAZEPAM [Concomitant]
  3. MARIJUANA (CANNABIS SATIVA) [Concomitant]

REACTIONS (2)
  - ASTHENIA [None]
  - HYPOTENSION [None]
